FAERS Safety Report 9580167 (Version 2)
Quarter: 2013Q4

REPORT INFORMATION
  Report Type: Spontaneous
  Country: US (occurrence: US)
  Receive Date: 20131002
  Receipt Date: 20131024
  Transmission Date: 20140711
  Serious: Yes (Death)
  Sender: FDA-Public Use
  Company Number: US-BRISTOL-MYERS SQUIBB COMPANY-19414267

PATIENT
  Age: 79 Year
  Sex: Male

DRUGS (22)
  1. SPRYCEL [Suspect]
     Indication: HEPATIC CANCER
     Route: 048
     Dates: start: 20130911, end: 20130913
  2. SPRYCEL [Suspect]
     Indication: ACUTE LYMPHOCYTIC LEUKAEMIA
     Route: 048
     Dates: start: 20130911, end: 20130913
  3. ATORVASTATIN [Concomitant]
     Route: 048
     Dates: start: 20130910
  4. BISACODYL [Concomitant]
     Indication: CONSTIPATION
     Route: 048
     Dates: start: 20130910
  5. CIPROFLOXACIN [Concomitant]
     Route: 048
     Dates: start: 20130910
  6. DIPHENHYDRAMINE [Concomitant]
     Route: 048
     Dates: start: 20130910
  7. FINASTERIDE [Concomitant]
     Indication: BENIGN PROSTATIC HYPERPLASIA
     Route: 048
     Dates: start: 20130910
  8. GUAIFENESIN [Concomitant]
     Dates: start: 20130910
  9. HUMALOG [Concomitant]
  10. ISOSORBIDE MONONITRATE [Concomitant]
     Route: 048
  11. LANTUS [Concomitant]
     Indication: TYPE 2 DIABETES MELLITUS
     Dosage: 1DF: 12 UNITS
     Route: 058
  12. LEVOTHYROXINE [Concomitant]
     Indication: HYPOTHYROIDISM
     Route: 048
     Dates: start: 20130910
  13. MEGESTROL [Concomitant]
     Route: 048
     Dates: start: 20130910
  14. METOPROLOL [Concomitant]
     Route: 048
     Dates: start: 20130910
  15. NEXIUM [Concomitant]
     Route: 048
     Dates: start: 20130910
  16. NITROSTAT [Concomitant]
     Dosage: 1DF: 1 TAB
     Route: 060
  17. ONDANSETRON [Concomitant]
     Route: 048
     Dates: start: 20130910
  18. OXYCODONE [Concomitant]
     Indication: PAIN
     Route: 048
     Dates: start: 20130910
  19. POLYETHYLENE GLYCOL [Concomitant]
     Indication: CONSTIPATION
     Route: 048
     Dates: start: 20130910
  20. PREDNISONE [Concomitant]
     Indication: OSTEOARTHRITIS
     Route: 048
     Dates: start: 20130910
  21. PROCHLORPERAZINE [Concomitant]
     Indication: NAUSEA
     Route: 048
     Dates: start: 20130910
  22. PROCHLORPERAZINE [Concomitant]
     Indication: VOMITING
     Route: 048
     Dates: start: 20130910

REACTIONS (2)
  - Malignant neoplasm progression [Fatal]
  - Off label use [Unknown]
